FAERS Safety Report 9421966 (Version 1)
Quarter: 2013Q3

REPORT INFORMATION
  Report Type: Spontaneous
  Country: US (occurrence: US)
  Receive Date: 20130726
  Receipt Date: 20130726
  Transmission Date: 20140515
  Serious: Yes (Hospitalization, Other)
  Sender: FDA-Public Use
  Company Number: US-JNJFOC-20130711415

PATIENT
  Sex: Female
  Weight: 65.77 kg

DRUGS (10)
  1. REMICADE [Suspect]
     Indication: CROHN^S DISEASE
     Route: 042
  2. HUMIRA [Suspect]
     Indication: CROHN^S DISEASE
     Route: 050
     Dates: start: 2011, end: 2012
  3. CIMZIA [Suspect]
     Indication: CROHN^S DISEASE
     Route: 065
     Dates: start: 2012
  4. VITAMIN B12 [Concomitant]
     Route: 065
  5. PRILOSEC [Concomitant]
     Indication: GASTROOESOPHAGEAL REFLUX DISEASE
     Route: 065
  6. LOMOTIL [Concomitant]
     Indication: DIARRHOEA
     Route: 065
  7. ZOFRAN [Concomitant]
     Indication: NAUSEA
     Route: 065
  8. POTASSIUM [Concomitant]
     Route: 065
  9. LEVOTHYROXINE [Concomitant]
     Indication: THYROID DISORDER
     Route: 065
  10. COUMADIN [Concomitant]
     Indication: PULMONARY EMBOLISM
     Route: 065

REACTIONS (5)
  - Large intestinal ulcer [Unknown]
  - Thrombosis [Recovered/Resolved]
  - Abdominal adhesions [Unknown]
  - Large intestinal stenosis [Unknown]
  - Crohn^s disease [Unknown]
